FAERS Safety Report 7270368-X (Version None)
Quarter: 2011Q1

REPORT INFORMATION
  Report Type: 
  Country: None (occurrence: None)
  Receive Date: 20110202
  Receipt Date: 20101201
  Transmission Date: 20110831
  Serious: Yes (Hospitalization)
  Sender: FDA-Public Use
  Company Number: AU-BAYER-2010-000023

PATIENT
  Sex: Female

DRUGS (2)
  1. ESTRADERM [Concomitant]
     Indication: PREMENSTRUAL SYNDROME
     Dosage: DAILY DOSE 75 ?G
     Route: 062
  2. MIRENA [Suspect]
     Indication: PRODUCT USED FOR UNKNOWN INDICATION

REACTIONS (1)
  - NEPHROLITHIASIS [None]
